FAERS Safety Report 10362883 (Version 1)
Quarter: 2014Q1

REPORT INFORMATION
  Report Type: Spontaneous
  Country: US (occurrence: None)
  Receive Date: 20140306
  Receipt Date: 20140306
  Transmission Date: 20141002
  Serious: Yes (Hospitalization)
  Sender: FDA-Public Use
  Company Number: 163-21880-13060775

PATIENT
  Age: 80 Year
  Sex: Female
  Weight: 64.18 kg

DRUGS (4)
  1. REVLIMID (LENALIDOMIDE) (10 MILLIGRAM, CAPSULES) [Suspect]
     Indication: PLASMA CELL MYELOMA
     Dosage: 10 MG, 21 IN 28 D
     Route: 048
     Dates: start: 201107
  2. DONEPEZIL (UNKNOWN) [Concomitant]
  3. MULTIVITAMIN (UNKNOWN) [Concomitant]
  4. LOTREL (UNKNOWN) [Concomitant]

REACTIONS (1)
  - Femur fracture [None]
